FAERS Safety Report 22016264 (Version 1)
Quarter: 2023Q1

REPORT INFORMATION
  Report Type: Spontaneous
  Country: IT (occurrence: IT)
  Receive Date: 20230221
  Receipt Date: 20230221
  Transmission Date: 20230418
  Serious: Yes (Hospitalization, Other)
  Sender: FDA-Public Use
  Company Number: IT-Hikma Pharmaceuticals-IT-H14001-23-00413

PATIENT
  Age: 16 Year
  Sex: Male

DRUGS (4)
  1. CYTARABINE [Suspect]
     Active Substance: CYTARABINE
     Indication: Acute myeloid leukaemia
     Route: 065
  2. CYTARABINE [Suspect]
     Active Substance: CYTARABINE
     Dosage: LOW DOSE
     Route: 042
  3. FLUDARABINE [Suspect]
     Active Substance: FLUDARABINE PHOSPHATE
     Indication: Acute myeloid leukaemia
     Route: 065
  4. THIOGUANINE [Suspect]
     Active Substance: THIOGUANINE
     Indication: Acute myeloid leukaemia
     Dosage: UNKNOWN
     Route: 048

REACTIONS (12)
  - Mucosal inflammation [Unknown]
  - Febrile neutropenia [Unknown]
  - Hepatosplenomegaly [Unknown]
  - Ascites [Unknown]
  - Leukocytosis [Unknown]
  - Leukaemic infiltration [Unknown]
  - Escherichia sepsis [Unknown]
  - Pyrexia [Unknown]
  - Thrombocytopenia [Unknown]
  - Toxicity to various agents [Unknown]
  - Condition aggravated [Unknown]
  - Drug ineffective [Unknown]
